FAERS Safety Report 8388685-9 (Version None)
Quarter: 2012Q2

REPORT INFORMATION
  Report Type: 
  Country: None (occurrence: None)
  Receive Date: 20120526
  Receipt Date: 20120515
  Transmission Date: 20120825
  Serious: Yes (Other)
  Sender: FDA-Public Use
  Company Number: BR-AMGEN-BRASP2012031595

PATIENT
  Age: 54 Year
  Sex: Female
  Weight: 68 kg

DRUGS (3)
  1. AMLODIL [Concomitant]
     Indication: HYPERTENSION
     Dosage: UNK
  2. ENBREL [Suspect]
     Indication: PSORIATIC ARTHROPATHY
     Dosage: 50 MG, WEEKLY
     Route: 058
     Dates: start: 20110901
  3. ATENOLOL [Concomitant]
     Indication: GLAUCOMA
     Dosage: UNK

REACTIONS (2)
  - THROMBOSIS [None]
  - GLUCOSE TOLERANCE IMPAIRED [None]
